FAERS Safety Report 10447112 (Version 1)
Quarter: 2014Q3

REPORT INFORMATION
  Report Type: Spontaneous
  Country: US (occurrence: None)
  Receive Date: 20140909
  Receipt Date: 20140909
  Transmission Date: 20150326
  Serious: Yes (Hospitalization)
  Sender: FDA-Public Use
  Company Number: 2014AP004448

PATIENT
  Age: 77 Year
  Sex: Male

DRUGS (2)
  1. ZOLPIDEM (ZOLPIDEM) TABLET [Suspect]
     Active Substance: ZOLPIDEM TARTRATE
     Indication: PRODUCT USED FOR UNKNOWN INDICATION
     Route: 048
  2. LIOMETACEN (INDOMETACIN MEGLUMINE) [Suspect]
     Active Substance: INDOMETACIN MEGLUMINE
     Indication: OSTEOARTHRITIS
     Route: 030

REACTIONS (2)
  - Accidental poisoning [None]
  - Confusional state [None]

NARRATIVE: CASE EVENT DATE: 20130330
